FAERS Safety Report 7367321-4 (Version None)
Quarter: 2011Q1

REPORT INFORMATION
  Report Type: 
  Country: None (occurrence: None)
  Receive Date: 20110321
  Receipt Date: 20110321
  Transmission Date: 20110831
  Serious: Yes (Other)
  Sender: FDA-Public Use
  Company Number: None

PATIENT
  Sex: Male
  Weight: 79.3795 kg

DRUGS (1)
  1. ALCOHOL PAD TRIAD [Suspect]
     Indication: INJECTION
     Dates: start: 20010212

REACTIONS (8)
  - CHILLS [None]
  - HYPOAESTHESIA [None]
  - ABSCESS [None]
  - MULTIPLE SCLEROSIS [None]
  - PRODUCT QUALITY ISSUE [None]
  - DYSPNOEA [None]
  - PAIN IN EXTREMITY [None]
  - MUSCLE SPASTICITY [None]
